FAERS Safety Report 7473747-0 (Version None)
Quarter: 2011Q2

REPORT INFORMATION
  Report Type: 
  Country: None (occurrence: None)
  Receive Date: 20110511
  Receipt Date: 20110503
  Transmission Date: 20111010
  Serious: Yes (Hospitalization)
  Sender: FDA-Public Use
  Company Number: IL-BRISTOL-MYERS SQUIBB COMPANY-15148323

PATIENT
  Age: 61 Year
  Sex: Female
  Weight: 51 kg

DRUGS (3)
  1. CISPLATIN [Suspect]
     Indication: GASTROOESOPHAGEAL CANCER
     Dosage: RECENT DOSE:23MAY10 ON DAY 1 OF CYCLE
     Route: 042
     Dates: start: 20100523
  2. XELODA [Suspect]
     Indication: GASTROOESOPHAGEAL CANCER
     Dosage: RECENT DOSE:01JUN10 ON DAY 1 TO 15 TABS
     Route: 048
     Dates: start: 20100523
  3. ERBITUX [Suspect]
     Indication: GASTROOESOPHAGEAL CANCER
     Dosage: 5 MG/ML;RECENT DOSE:01JUN10
     Route: 042
     Dates: start: 20100523

REACTIONS (1)
  - SYNCOPE [None]
